FAERS Safety Report 22064778 (Version 6)
Quarter: 2023Q2

REPORT INFORMATION
  Report Type: Spontaneous
  Country: US (occurrence: US)
  Receive Date: 20230306
  Receipt Date: 20230629
  Transmission Date: 20230722
  Serious: No
  Sender: FDA-Public Use
  Company Number: US-PFIZER INC-202300089423

PATIENT
  Age: 11 Year
  Sex: Male
  Weight: 29.48 kg

DRUGS (4)
  1. GENOTROPIN [Suspect]
     Active Substance: SOMATROPIN
     Indication: Short stature
     Dosage: 1.2 MG, DAILY
     Dates: start: 202302
  2. NORDITROPIN [Concomitant]
     Active Substance: SOMATROPIN
     Indication: Short stature
     Dosage: 1.2 MG (VIA PEN)
  3. METHYLPHENIDATE [Concomitant]
     Active Substance: METHYLPHENIDATE
     Indication: Attention deficit hyperactivity disorder
     Dosage: 18 MG
     Dates: end: 202302
  4. GUANFACINE [Concomitant]
     Active Substance: GUANFACINE
     Indication: Attention deficit hyperactivity disorder
     Dosage: UNK, 2X/DAY (1 PILL IN THE MORNING AND 1.5 PILLS AT NIGHT)

REACTIONS (5)
  - Device issue [Unknown]
  - Injection site pain [Recovered/Resolved with Sequelae]
  - Crying [Unknown]
  - Injury [Unknown]
  - Injection site bruising [Not Recovered/Not Resolved]
